FAERS Safety Report 6519184-4 (Version None)
Quarter: 2009Q4

REPORT INFORMATION
  Report Type: 
  Country: None (occurrence: None)
  Receive Date: 20091224
  Receipt Date: 20091224
  Transmission Date: 20100525
  Serious: No
  Sender: FDA-Public Use
  Company Number: None

PATIENT
  Age: 24 Year
  Sex: Female

DRUGS (1)
  1. OXYCODONE AND ACETAMINOPHEN [Suspect]
     Indication: PAIN
     Dosage: 1 TO 2 TABLETS EVERY 6 HOURS PO
     Route: 048
     Dates: start: 20091104, end: 20091104

REACTIONS (1)
  - RASH PRURITIC [None]
